FAERS Safety Report 22031249 (Version 1)
Quarter: 2023Q1

REPORT INFORMATION
  Report Type: Spontaneous
  Country: CN (occurrence: CN)
  Receive Date: 20230223
  Receipt Date: 20230223
  Transmission Date: 20230417
  Serious: Yes (Other)
  Sender: FDA-Public Use
  Company Number: None

PATIENT
  Age: 35 Year
  Sex: Male
  Weight: 64 kg

DRUGS (10)
  1. CYCLOPHOSPHAMIDE [Suspect]
     Active Substance: CYCLOPHOSPHAMIDE
     Indication: Plasma cell myeloma
     Dosage: 0.6 G, QD, D1-D4, DILUTED WITH 250 ML OF 0.9% SODIUM CHLORIDE, AS A PART OF FOURTH CYCLE OF DECP REG
     Route: 041
     Dates: start: 20221220, end: 20221223
  2. SODIUM CHLORIDE [Suspect]
     Active Substance: SODIUM CHLORIDE
     Indication: Medication dilution
     Dosage: 250 ML, QD, D1-D4, USED TO DILUTE 0.6 G CYCLOPHOSPHAMIDE
     Route: 041
     Dates: start: 20221220, end: 20221223
  3. SODIUM CHLORIDE [Suspect]
     Active Substance: SODIUM CHLORIDE
     Dosage: 250 ML, QD, D1-D4, USED TO DILUTE 50 MG ETOPOSIDE
     Route: 041
     Dates: start: 20221220, end: 20221223
  4. SODIUM CHLORIDE [Suspect]
     Active Substance: SODIUM CHLORIDE
     Dosage: 50 ML, QD, D1-D4, USED TO DILUTE 0.4 MG AMIFOSTINE
     Route: 041
     Dates: start: 20221220, end: 20221223
  5. SODIUM CHLORIDE [Suspect]
     Active Substance: SODIUM CHLORIDE
     Dosage: 500 ML, QD, D1-D4, USED TO DILUTE 10 MG CISPLATIN
     Route: 041
     Dates: start: 20221220, end: 20221223
  6. ETOPOSIDE [Suspect]
     Active Substance: ETOPOSIDE
     Indication: Plasma cell myeloma
     Dosage: 50 MG, QD, D1-D4, DILUTED WITH 250 ML OF 0.9% SODIUM CHLORIDE, AS A PART OF FOURTH CYCLE OF DECP REG
     Route: 041
     Dates: start: 20221220, end: 20221223
  7. LENALIDOMIDE [Suspect]
     Active Substance: LENALIDOMIDE
     Indication: Plasma cell myeloma
     Dosage: 25 MG, QD
     Route: 041
     Dates: start: 20221220, end: 20230102
  8. AMIFOSTINE [Suspect]
     Active Substance: AMIFOSTINE
     Indication: Plasma cell myeloma
     Dosage: 0.4 MG, QD, D1-D4, DILUTED WITH 50 ML OF 0.9% SODIUM CHLORIDE, AS A PART OF FOURTH CYCLE OF DECP REG
     Route: 041
     Dates: start: 20221220, end: 20221223
  9. CISPLATIN [Suspect]
     Active Substance: CISPLATIN
     Indication: Plasma cell myeloma
     Dosage: 10 MG, QD, D1-D4, DILUTED WITH 500 ML OF 0.9% SODIUM CHLORIDE, AS A PART OF FOURTH CYCLE OF DECP REG
     Route: 041
     Dates: start: 20221220, end: 20221223
  10. DEXAMETHASONE [Suspect]
     Active Substance: DEXAMETHASONE
     Indication: Plasma cell myeloma
     Dosage: AS A PART OF FOURTH CYCLE OF DECP REGIMEN
     Route: 065

REACTIONS (1)
  - Myelosuppression [Recovering/Resolving]

NARRATIVE: CASE EVENT DATE: 20230102
